FAERS Safety Report 22320715 (Version 1)
Quarter: 2023Q2

REPORT INFORMATION
  Report Type: Spontaneous
  Country: DE (occurrence: DE)
  Receive Date: 20230515
  Receipt Date: 20230515
  Transmission Date: 20230722
  Serious: Yes (Hospitalization, Other)
  Sender: FDA-Public Use
  Company Number: DE-APIL-2314400US

PATIENT
  Sex: Male
  Weight: 78 kg

DRUGS (3)
  1. PYLERA [Suspect]
     Active Substance: BISMUTH SUBCITRATE POTASSIUM\METRONIDAZOLE\TETRACYCLINE HYDROCHLORIDE
     Indication: Helicobacter gastritis
  2. RAMIPRIL [Concomitant]
     Active Substance: RAMIPRIL
  3. OMEPRAZOLE [Concomitant]
     Active Substance: OMEPRAZOLE
     Dosage: UNK, PRN

REACTIONS (2)
  - Hepatitis C [Unknown]
  - Hepatocellular carcinoma [Unknown]
